FAERS Safety Report 20877708 (Version 1)
Quarter: 2022Q2

REPORT INFORMATION
  Report Type: Spontaneous
  Country: US (occurrence: US)
  Receive Date: 20220526
  Receipt Date: 20220526
  Transmission Date: 20220721
  Serious: Yes (Other)
  Sender: FDA-Public Use
  Company Number: US-MYLANLABS-2022M1038878

PATIENT
  Age: 68 Year
  Sex: Female

DRUGS (4)
  1. PACLITAXEL [Suspect]
     Active Substance: PACLITAXEL
     Indication: Rash papular
     Dosage: UNK, CYCLE, 3 CYCLES
     Route: 065
  2. PACLITAXEL [Suspect]
     Active Substance: PACLITAXEL
     Indication: Vascular skin disorder
  3. GEMCITABINE [Concomitant]
     Active Substance: GEMCITABINE
     Indication: Rash papular
     Dosage: NEOADJUVANT THERAPY
     Route: 065
  4. DOCETAXEL [Concomitant]
     Active Substance: DOCETAXEL
     Indication: Rash papular
     Dosage: NEOADJUVANT THERAPY
     Route: 065

REACTIONS (2)
  - Neuropathy peripheral [Unknown]
  - Off label use [Unknown]
